FAERS Safety Report 19383752 (Version 1)
Quarter: 2021Q2

REPORT INFORMATION
  Report Type: Spontaneous
  Country: US (occurrence: US)
  Receive Date: 20210607
  Receipt Date: 20210607
  Transmission Date: 20210717
  Serious: No
  Sender: FDA-Public Use
  Company Number: US-PERRIGO-20US016129

PATIENT
  Age: 74 Year
  Sex: Male

DRUGS (6)
  1. DIHYDROERGOTAMINE MESYLATE. [Suspect]
     Active Substance: DIHYDROERGOTAMINE MESYLATE
     Dosage: UNKNOWN, QD
     Route: 042
     Dates: start: 20201012, end: 20201013
  2. DIHYDROERGOTAMINE MESYLATE. [Suspect]
     Active Substance: DIHYDROERGOTAMINE MESYLATE
     Indication: MIGRAINE PROPHYLAXIS
     Dosage: UNKNOWN, UNKNOWN
     Route: 058
  3. DEXAMETHASONE. [Suspect]
     Active Substance: DEXAMETHASONE
     Dosage: 1 MG, TWICE (ONCE AT 0630 AND 0730)
     Route: 048
     Dates: start: 20201015, end: 20201015
  4. RIMEGEPANT. [Suspect]
     Active Substance: RIMEGEPANT
     Indication: MIGRAINE
     Dosage: 75 MG, SINGLE
     Route: 048
     Dates: start: 20201014, end: 20201014
  5. DEXAMETHASONE. [Suspect]
     Active Substance: DEXAMETHASONE
     Indication: MIGRAINE
     Dosage: 2 MG, THREE TIMES (ONCE AT 0600, 1500, AND 2100)
     Route: 048
     Dates: start: 20201014, end: 20201014
  6. ERENUMAB [Suspect]
     Active Substance: ERENUMAB
     Indication: MIGRAINE PROPHYLAXIS
     Dosage: UNKNOWN, MONTHLY
     Route: 065
     Dates: start: 20201002

REACTIONS (2)
  - Condition aggravated [Recovered/Resolved]
  - Drug ineffective [Unknown]

NARRATIVE: CASE EVENT DATE: 20201012
